FAERS Safety Report 8114762-3 (Version None)
Quarter: 2012Q1

REPORT INFORMATION
  Report Type: 
  Country: None (occurrence: None)
  Receive Date: 20120202
  Receipt Date: 20120202
  Transmission Date: 20120608
  Serious: Yes (Hospitalization)
  Sender: FDA-Public Use
  Company Number: None

PATIENT
  Age: 85 Year
  Sex: Female
  Weight: 68.0396 kg

DRUGS (1)
  1. PRADAXA [Suspect]
     Indication: ANTICOAGULANT THERAPY
     Dosage: 150MG DAILY

REACTIONS (7)
  - MYOCARDIAL INFARCTION [None]
  - VOMITING [None]
  - ASTHENIA [None]
  - RECTAL HAEMORRHAGE [None]
  - HEART RATE IRREGULAR [None]
  - HYPERTENSION [None]
  - DIARRHOEA [None]
